FAERS Safety Report 7466742-9 (Version None)
Quarter: 2011Q2

REPORT INFORMATION
  Report Type: 
  Country: None (occurrence: None)
  Receive Date: 20110509
  Receipt Date: 20100824
  Transmission Date: 20111010
  Serious: No
  Sender: FDA-Public Use
  Company Number: US-ALEXION-A201001070

PATIENT
  Sex: Female

DRUGS (4)
  1. ARANESP [Concomitant]
     Dosage: 300 UG, UNK
  2. VITAMIN B-12 [Concomitant]
     Dosage: 1000 UG, MONTHLY
  3. CYCLOSPORINE [Concomitant]
  4. SOLIRIS [Suspect]
     Indication: PAROXYSMAL NOCTURNAL HAEMOGLOBINURIA
     Dosage: UNK
     Route: 042

REACTIONS (6)
  - NECK PAIN [None]
  - RETICULOCYTE COUNT INCREASED [None]
  - OROPHARYNGEAL PAIN [None]
  - WEIGHT INCREASED [None]
  - BLOOD LACTATE DEHYDROGENASE INCREASED [None]
  - HEADACHE [None]
